FAERS Safety Report 9114207 (Version 1)
Quarter: 2013Q1

REPORT INFORMATION
  Report Type: Spontaneous
  Country: US (occurrence: US)
  Receive Date: 20130208
  Receipt Date: 20130208
  Transmission Date: 20140127
  Serious: Yes (Death, Other)
  Sender: FDA-Public Use
  Company Number: CHPA2013US002518

PATIENT
  Age: 53 Year
  Sex: Female

DRUGS (6)
  1. DIPHENHYDRAMINE [Suspect]
     Dosage: UNK, UNK
     Route: 048
  2. BISMUTH SUBSALICYLATE [Suspect]
     Dosage: UNK, UNK
     Route: 048
  3. BUPROPION [Suspect]
     Dosage: UNK, UNK
     Route: 048
  4. TRAZODONE [Suspect]
     Dosage: UNK, UNK
     Route: 048
  5. LOPERAMIDE [Suspect]
     Dosage: UNK, UNK
     Route: 048
  6. AMPHETAMINE [Suspect]
     Dosage: UNK, UNK
     Route: 048

REACTIONS (2)
  - Completed suicide [Fatal]
  - Cardio-respiratory arrest [Unknown]
